FAERS Safety Report 7000742-8 (Version None)
Quarter: 2010Q3

REPORT INFORMATION
  Report Type: 
  Country: None (occurrence: None)
  Receive Date: 20100920
  Receipt Date: 20100406
  Transmission Date: 20110219
  Serious: No
  Sender: FDA-Public Use
  Company Number: US-ASTRAZENECA-2010SE15040

PATIENT
  Age: 40 Year
  Sex: Female
  Weight: 58.1 kg

DRUGS (6)
  1. SEROQUEL [Suspect]
     Indication: PANIC ATTACK
     Route: 048
  2. SEROQUEL [Suspect]
     Route: 048
  3. CLANOZIPAM [Concomitant]
  4. LIPITOR [Concomitant]
     Indication: BLOOD CHOLESTEROL INCREASED
  5. ZOLOFT [Concomitant]
  6. SYMBALTA [Concomitant]

REACTIONS (3)
  - BLOOD CHOLESTEROL INCREASED [None]
  - MIDDLE INSOMNIA [None]
  - TACHYPHRENIA [None]
